FAERS Safety Report 21927914 (Version 1)
Quarter: 2023Q1

REPORT INFORMATION
  Report Type: Report from Study
  Country: MX (occurrence: MX)
  Receive Date: 20230130
  Receipt Date: 20230130
  Transmission Date: 20230418
  Serious: Yes (Hospitalization)
  Sender: FDA-Public Use
  Company Number: MX-002147023-NVSC2023MX020260

PATIENT
  Sex: Female
  Weight: 55 kg

DRUGS (1)
  1. EXFORGE HCT [Suspect]
     Active Substance: AMLODIPINE BESYLATE\HYDROCHLOROTHIAZIDE\VALSARTAN
     Indication: Hypertension
     Dosage: 1 DOSAGE FORM (BY MOUTH) AT BREAKFAST
     Route: 048
     Dates: start: 202211, end: 20221212

REACTIONS (3)
  - Blood pressure increased [Unknown]
  - Ill-defined disorder [Unknown]
  - Drug ineffective [Unknown]
